FAERS Safety Report 20947526 (Version 1)
Quarter: 2022Q2

REPORT INFORMATION
  Report Type: Spontaneous
  Country: US (occurrence: US)
  Receive Date: 20220610
  Receipt Date: 20220610
  Transmission Date: 20220720
  Serious: No
  Sender: FDA-Public Use
  Company Number: US-RIGEL PHARMACEUTICALS, INC.-2021FOS000882

PATIENT
  Age: 49 Year
  Sex: Female

DRUGS (2)
  1. TAVALISSE [Suspect]
     Active Substance: FOSTAMATINIB
     Indication: Product used for unknown indication
     Dosage: 100 MG, BID
     Route: 048
  2. TAVALISSE [Suspect]
     Active Substance: FOSTAMATINIB
     Dosage: 100 MG, QD
     Route: 048

REACTIONS (4)
  - Vomiting [Unknown]
  - Pruritus [Unknown]
  - Nausea [Unknown]
  - Diarrhoea [Unknown]

NARRATIVE: CASE EVENT DATE: 20220101
